FAERS Safety Report 5797214-5 (Version None)
Quarter: 2008Q3

REPORT INFORMATION
  Report Type: 
  Country: None (occurrence: None)
  Receive Date: 20080701
  Receipt Date: 20080624
  Transmission Date: 20090109
  Serious: Yes (Other)
  Sender: FDA-Public Use
  Company Number: FR-ABBOTT-08P-056-0440846-00

PATIENT
  Age: 13 Year
  Sex: Female

DRUGS (9)
  1. MICROPAKINE GRANULE [Suspect]
     Indication: EPILEPSY
     Route: 048
     Dates: start: 20080101
  2. MICROPAKINE GRANULE [Suspect]
     Route: 048
  3. TOPIRAMATE [Concomitant]
     Indication: EPILEPSY
     Route: 048
  4. CLARITHROMYCIN [Concomitant]
     Indication: DRUG USE FOR UNKNOWN INDICATION
     Route: 048
  5. ACETAMINOPHEN [Concomitant]
     Indication: DRUG USE FOR UNKNOWN INDICATION
     Route: 048
  6. BETAMETHASONE [Concomitant]
     Indication: DRUG USE FOR UNKNOWN INDICATION
     Route: 048
  7. LEVETIRACETAM [Concomitant]
     Indication: DRUG USE FOR UNKNOWN INDICATION
     Route: 048
  8. ETHOSUXIMIDE [Concomitant]
     Indication: DRUG USE FOR UNKNOWN INDICATION
     Route: 048
  9. VIGABATRIN [Concomitant]
     Indication: DRUG USE FOR UNKNOWN INDICATION
     Route: 048

REACTIONS (2)
  - EPILEPSY [None]
  - EXPIRED DRUG ADMINISTERED [None]
